FAERS Safety Report 7690007 (Version 5)
Quarter: 2013Q4

REPORT INFORMATION
  Report Type: Spontaneous
  Country: FR (occurrence: None)
  Receive Date: 20101105
  Receipt Date: 20131021
  Transmission Date: 20140711
  Serious: Yes (Other)
  Sender: FDA-Public Use
  Company Number: 2010FR0043

PATIENT
  Age: 21 Year
  Sex: Male

DRUGS (3)
  1. ORFADIN [Suspect]
     Indication: TYROSINAEMIA
     Dosage: 80 MG (40 MG, 2 IN 1 D) ORAL
     Route: 048
     Dates: start: 19970506
  2. VITAMIN D [Concomitant]
  3. VITAMIN K [Concomitant]

REACTIONS (6)
  - Hepatic cancer [None]
  - Haemorrhage [None]
  - Amino acid level increased [None]
  - Succinylacetone increased [None]
  - Treatment noncompliance [None]
  - Liver transplant [None]
